FAERS Safety Report 5800413-7 (Version None)
Quarter: 2008Q3

REPORT INFORMATION
  Report Type: 
  Country: None (occurrence: None)
  Receive Date: 20080703
  Receipt Date: 20080625
  Transmission Date: 20090109
  Serious: Yes (Death, Other)
  Sender: FDA-Public Use
  Company Number: JP-ROCHE-568751

PATIENT
  Age: 17 Year
  Sex: Male

DRUGS (2)
  1. TAMIFLU [Suspect]
     Route: 065
     Dates: start: 20040205
  2. AMANTADINE HCL [Concomitant]
     Dates: start: 20040204

REACTIONS (2)
  - ABNORMAL BEHAVIOUR [None]
  - ACCIDENTAL DEATH [None]
